FAERS Safety Report 4761137-0 (Version None)
Quarter: 2005Q3

REPORT INFORMATION
  Report Type: 
  Country: None (occurrence: None)
  Receive Date: 20050901
  Receipt Date: 20050823
  Transmission Date: 20060218
  Serious: Yes (Hospitalization)
  Sender: FDA-Public Use
  Company Number: 2005-129153-NL

PATIENT
  Age: 80 Year
  Sex: Male

DRUGS (6)
  1. MIRTAZAPINE [Suspect]
     Indication: BIPOLAR I DISORDER
     Dosage: 15 MG, ORAL
     Route: 048
     Dates: start: 20030401
  2. MIRTAZAPINE [Suspect]
     Indication: MAJOR DEPRESSION
     Dosage: 15 MG, ORAL
     Route: 048
     Dates: start: 20030401
  3. RISPERIDONE [Suspect]
     Indication: BIPOLAR I DISORDER
     Dosage: 2 MG/1 MG, ORAL
     Route: 048
     Dates: start: 20030401
  4. RISPERIDONE [Suspect]
     Indication: MAJOR DEPRESSION
     Dosage: 2 MG/1 MG, ORAL
     Route: 048
     Dates: start: 20030401
  5. DI-ANTALVIC [Suspect]
     Dosage: 1 DF, ORAL
     Route: 048
  6. METFORMIN HYDROCHLORIDE [Suspect]
     Dosage: 1700 MG, ORAL
     Route: 048

REACTIONS (10)
  - CEREBROVASCULAR ACCIDENT [None]
  - HEADACHE [None]
  - HYPERPROLACTINAEMIA [None]
  - HYPERTENSION [None]
  - NECROSIS [None]
  - NUCLEAR MAGNETIC RESONANCE IMAGING ABNORMAL [None]
  - PITUITARY ENLARGEMENT [None]
  - PITUITARY TUMOUR BENIGN [None]
  - SOMNOLENCE [None]
  - VOMITING [None]
